FAERS Safety Report 5535154-7 (Version None)
Quarter: 2007Q4

REPORT INFORMATION
  Report Type: 
  Country: None (occurrence: None)
  Receive Date: 20071206
  Receipt Date: 20071128
  Transmission Date: 20080405
  Serious: Yes (Other)
  Sender: FDA-Public Use
  Company Number: PHBS2007BR20066

PATIENT
  Age: 47 Year
  Sex: Female
  Weight: 68 kg

DRUGS (4)
  1. TEGRETOL [Suspect]
     Indication: ARRHYTHMIA
     Dosage: 200 MG, BID
     Route: 048
     Dates: start: 20060101
  2. BROMAZEPAM [Concomitant]
     Indication: ARRHYTHMIA
     Dates: end: 20070813
  3. GINKGO BILOBA [Concomitant]
     Indication: ARRHYTHMIA
     Dates: end: 20070813
  4. MELISSA OFFICINALIS [Concomitant]
     Indication: ARRHYTHMIA
     Dates: end: 20070813

REACTIONS (6)
  - ARRHYTHMIA [None]
  - BLOOD CHOLESTEROL INCREASED [None]
  - BLOOD POTASSIUM INCREASED [None]
  - GAMMA-GLUTAMYLTRANSFERASE INCREASED [None]
  - MITRAL VALVE INCOMPETENCE [None]
  - TRICUSPID VALVE INCOMPETENCE [None]
